FAERS Safety Report 16015966 (Version 1)
Quarter: 2019Q1

REPORT INFORMATION
  Report Type: Spontaneous
  Country: FR (occurrence: FR)
  Receive Date: 20190228
  Receipt Date: 20190228
  Transmission Date: 20190418
  Serious: Yes (Hospitalization)
  Sender: FDA-Public Use
  Company Number: FR-ACCORD-109758

PATIENT
  Age: 97 Year
  Sex: Male

DRUGS (4)
  1. FUROSEMIDE. [Suspect]
     Active Substance: FUROSEMIDE
     Indication: CARDIAC FAILURE
     Dosage: UNSPECIFIED
     Route: 048
     Dates: end: 20180810
  2. HEMIGOXINE NATIVELLE [Suspect]
     Active Substance: DIGOXIN
     Indication: CARDIAC FAILURE
     Dosage: 0.125 MG, TABLET
     Route: 048
     Dates: end: 20180810
  3. COVERSYL [Suspect]
     Active Substance: PERINDOPRIL
     Indication: CARDIAC FAILURE
     Dosage: 4 MG, SCORED TABLET
     Route: 048
     Dates: end: 20180810
  4. SPIRONOLACTONE. [Suspect]
     Active Substance: SPIRONOLACTONE
     Indication: CARDIAC FAILURE
     Dosage: UNSPECIFIED
     Route: 048
     Dates: end: 20180810

REACTIONS (6)
  - Psychomotor skills impaired [Recovering/Resolving]
  - Vertigo [Recovering/Resolving]
  - Dehydration [Recovering/Resolving]
  - General physical health deterioration [Recovering/Resolving]
  - Nausea [Recovering/Resolving]
  - Decreased appetite [Recovering/Resolving]

NARRATIVE: CASE EVENT DATE: 20180810
